FAERS Safety Report 17472778 (Version 1)
Quarter: 2020Q1

REPORT INFORMATION
  Report Type: Spontaneous
  Country: US (occurrence: US)
  Receive Date: 20200228
  Receipt Date: 20200228
  Transmission Date: 20200409
  Serious: No
  Sender: FDA-Public Use
  Company Number: None

PATIENT
  Age: 52 Year
  Sex: Male
  Weight: 77.4 kg

DRUGS (2)
  1. VITAMIN D3 [Concomitant]
     Active Substance: CHOLECALCIFEROL
  2. CLINDAMYCIN PHOSPHATE TOPICAL SOLUTION USP, 1% 60ML [Suspect]
     Active Substance: CLINDAMYCIN PHOSPHATE
     Indication: ANTIBIOTIC THERAPY
     Dosage: ?          QUANTITY:1 APPLICATION;?
     Route: 061
     Dates: start: 20200225

REACTIONS (3)
  - Product closure issue [None]
  - Product leakage [None]
  - Extra dose administered [None]

NARRATIVE: CASE EVENT DATE: 20200225
